FAERS Safety Report 7448310-8 (Version None)
Quarter: 2011Q2

REPORT INFORMATION
  Report Type: 
  Country: None (occurrence: None)
  Receive Date: 20110429
  Receipt Date: 20110420
  Transmission Date: 20111010
  Serious: Yes (Hospitalization)
  Sender: FDA-Public Use
  Company Number: BR-ASTRAZENECA-2011SE22587

PATIENT
  Age: 23 Year
  Sex: Male
  Weight: 49.9 kg

DRUGS (19)
  1. SEROQUEL [Suspect]
     Route: 048
     Dates: start: 20100101, end: 20101201
  2. NEXIUM [Suspect]
     Indication: GASTRITIS
     Route: 048
  3. NEXIUM [Suspect]
     Indication: HIATUS HERNIA
     Route: 048
  4. SEROQUEL [Suspect]
     Indication: INSOMNIA
     Route: 048
     Dates: start: 20100601, end: 20100101
  5. DEPAKOTE [Concomitant]
     Indication: BIPOLAR DISORDER
     Route: 048
     Dates: start: 20100101
  6. LAMITOR [Concomitant]
     Indication: AFFECTIVE DISORDER
     Route: 048
  7. SEROQUEL [Suspect]
     Route: 048
     Dates: start: 20101201
  8. LITHIUM CARBONATE [Concomitant]
     Indication: AFFECTIVE DISORDER
     Route: 048
     Dates: end: 20100101
  9. SEROQUEL [Suspect]
     Route: 048
     Dates: start: 20100101, end: 20100101
  10. SEROQUEL [Suspect]
     Route: 048
     Dates: start: 20100101, end: 20101201
  11. TOPTIL [Concomitant]
     Indication: BIPOLAR DISORDER
     Route: 048
     Dates: start: 20100101
  12. RISPERIDONE [Concomitant]
     Indication: BIPOLAR DISORDER
  13. SEROQUEL [Suspect]
     Indication: BIPOLAR DISORDER
     Route: 048
     Dates: start: 20100601, end: 20100101
  14. SEROQUEL [Suspect]
     Route: 048
     Dates: start: 20100101, end: 20100101
  15. SEROQUEL [Suspect]
     Route: 048
     Dates: start: 20101201
  16. ROHYPNOL [Concomitant]
     Indication: AFFECTIVE DISORDER
     Route: 048
  17. LYRICA [Concomitant]
     Indication: AFFECTIVE DISORDER
     Route: 048
  18. LITHIUM CARBONATE [Concomitant]
     Indication: BIPOLAR DISORDER
     Route: 048
     Dates: end: 20100101
  19. TRILEPTAL [Concomitant]
     Indication: BIPOLAR DISORDER
     Route: 048
     Dates: start: 20100101

REACTIONS (11)
  - OFF LABEL USE [None]
  - BIPOLAR DISORDER [None]
  - MOOD SWINGS [None]
  - SUICIDAL IDEATION [None]
  - BLOOD TRIGLYCERIDES INCREASED [None]
  - INSOMNIA [None]
  - DRUG INEFFECTIVE FOR UNAPPROVED INDICATION [None]
  - INCREASED APPETITE [None]
  - DEPRESSION [None]
  - WEIGHT INCREASED [None]
  - DRUG INEFFECTIVE [None]
